FAERS Safety Report 9165227 (Version 2)
Quarter: 2013Q2

REPORT INFORMATION
  Report Type: Spontaneous
  Country: SK (occurrence: SK)
  Receive Date: 20130315
  Receipt Date: 20130401
  Transmission Date: 20140414
  Serious: Yes (Death)
  Sender: FDA-Public Use
  Company Number: SK-ELI_LILLY_AND_COMPANY-SK201303002749

PATIENT
  Age: 79 Year
  Sex: Female

DRUGS (8)
  1. FORSTEO [Suspect]
     Indication: OSTEOPOROSIS POSTMENOPAUSAL
     Dosage: 20 UG, QD
     Route: 058
     Dates: start: 20120119
  2. ISOPTIN [Concomitant]
  3. DIGOXIN [Concomitant]
  4. ATROVENT [Concomitant]
  5. SYMBICORT [Concomitant]
  6. HYPNOGEN [Concomitant]
  7. FLONIDAN [Concomitant]
  8. SINGULAIR [Concomitant]

REACTIONS (1)
  - Death [Fatal]
